FAERS Safety Report 4688340-2 (Version None)
Quarter: 2005Q2

REPORT INFORMATION
  Report Type: 
  Country: None (occurrence: None)
  Receive Date: 20050609
  Receipt Date: 20050526
  Transmission Date: 20051028
  Serious: Yes (Hospitalization)
  Sender: FDA-Public Use
  Company Number: 11334

PATIENT
  Age: 75 Year
  Sex: Female

DRUGS (12)
  1. METHOTREXATE [Suspect]
  2. INFLIXIMAB [Suspect]
     Indication: RHEUMATOID ARTHRITIS
     Dosage: 160 MG IV
     Route: 042
     Dates: start: 20040729, end: 20040929
  3. PREDNISOLONE [Concomitant]
  4. FOLIC ACID [Concomitant]
  5. ALENDRONATE ACID [Concomitant]
  6. ROFECOXIB [Concomitant]
  7. PARACETAMOL/CODEINE [Concomitant]
  8. FLECAINIDE ACETATE [Concomitant]
  9. DESLORATADINE [Concomitant]
  10. MOMETASONE [Concomitant]
  11. COD LIVER OIL [Concomitant]
  12. EVENING PRIMROSE OIL [Concomitant]

REACTIONS (1)
  - ALVEOLITIS [None]
